FAERS Safety Report 10046101 (Version 1)
Quarter: 2014Q1

REPORT INFORMATION
  Report Type: Spontaneous
  Country: US (occurrence: US)
  Receive Date: 20140331
  Receipt Date: 20140331
  Transmission Date: 20141002
  Serious: No
  Sender: FDA-Public Use
  Company Number: US-009507513-1403USA008718

PATIENT
  Age: 84 Year
  Sex: Female

DRUGS (1)
  1. DULERA [Suspect]
     Dosage: 2 INHALATIONS DAILY
     Route: 055

REACTIONS (6)
  - Feeling jittery [Not Recovered/Not Resolved]
  - Memory impairment [Not Recovered/Not Resolved]
  - Hypotension [Not Recovered/Not Resolved]
  - Blood pressure diastolic decreased [Not Recovered/Not Resolved]
  - Heart rate decreased [Not Recovered/Not Resolved]
  - Tremor [Not Recovered/Not Resolved]
